FAERS Safety Report 7699720-5 (Version None)
Quarter: 2011Q3

REPORT INFORMATION
  Report Type: 
  Country: None (occurrence: None)
  Receive Date: 20110822
  Receipt Date: 20110811
  Transmission Date: 20111222
  Serious: No
  Sender: FDA-Public Use
  Company Number: US-BIOGENIDEC-2011BI030558

PATIENT
  Age: 41 Year
  Sex: Female

DRUGS (1)
  1. TYSABRI [Suspect]
     Indication: MULTIPLE SCLEROSIS
     Route: 042
     Dates: start: 20100925, end: 20110625

REACTIONS (5)
  - BACK PAIN [None]
  - MUSCLE SPASMS [None]
  - HEADACHE [None]
  - PAIN IN EXTREMITY [None]
  - NECK PAIN [None]
